FAERS Safety Report 14360178 (Version 2)
Quarter: 2018Q1

REPORT INFORMATION
  Report Type: Spontaneous
  Country: JP (occurrence: JP)
  Receive Date: 20180106
  Receipt Date: 20180213
  Transmission Date: 20180509
  Serious: Yes (Other)
  Sender: FDA-Public Use
  Company Number: JP-AMGEN-JPNSP2017193196

PATIENT
  Age: 51 Year
  Sex: Male
  Weight: 59 kg

DRUGS (6)
  1. HALAVEN [Concomitant]
     Active Substance: ERIBULIN MESYLATE
     Dosage: UNK
     Route: 042
  2. CANDESARTAN. [Concomitant]
     Active Substance: CANDESARTAN
     Dosage: UNK
     Route: 048
  3. DENOTAS [Concomitant]
     Active Substance: CALCIUM CARBONATE\CHOLECALCIFEROL\MAGNESIUM CARBONATE
     Dosage: UNK
     Route: 048
  4. TS-1 [Concomitant]
     Active Substance: GIMERACIL\OTERACIL\TEGAFUR
     Dosage: UNK
     Route: 048
  5. AMLODIPINE [Concomitant]
     Active Substance: AMLODIPINE BESYLATE
     Dosage: UNK
     Route: 048
  6. RANMARK [Suspect]
     Active Substance: DENOSUMAB
     Indication: BONE LESION
     Dosage: 120 MG, UNK
     Route: 058
     Dates: start: 20170520, end: 20170628

REACTIONS (2)
  - Blood calcium decreased [Recovered/Resolved]
  - Osteonecrosis of jaw [Unknown]

NARRATIVE: CASE EVENT DATE: 20170809
